FAERS Safety Report 10042382 (Version 2)
Quarter: 2014Q2

REPORT INFORMATION
  Report Type: Report from Study
  Country: BR (occurrence: BR)
  Receive Date: 20140327
  Receipt Date: 20140512
  Transmission Date: 20141212
  Serious: Yes (Other)
  Sender: FDA-Public Use
  Company Number: PHHY2014BR036927

PATIENT
  Sex: Male
  Weight: 70 kg

DRUGS (8)
  1. EXELON [Suspect]
     Indication: MEMORY IMPAIRMENT
     Dosage: UNK UKN, UNK
     Route: 048
  2. EXELON PATCH [Suspect]
     Indication: MEMORY IMPAIRMENT
     Dosage: 4.6 MG/24 HOURS (PATCH 5 CM2 DAILY)
     Route: 062
  3. EXELON PATCH [Suspect]
     Indication: PARKINSON^S DISEASE
     Dosage: 9.5 MG/24 HOURS (PATCH 10 CM2 DAILY)
     Route: 062
  4. PROLOPA HBS [Concomitant]
     Indication: PARKINSON^S DISEASE
     Dosage: 100/25 MG
  5. MANTIDAN [Concomitant]
     Indication: PARKINSON^S DISEASE
     Dosage: 100 MG, UNK
  6. DUSPATALIN//MEBEVERINE HYDROCHLORIDE [Concomitant]
     Indication: IRRITABLE BOWEL SYNDROME
     Dosage: 200 MG, UNK
  7. COMBODART [Concomitant]
     Indication: BENIGN PROSTATIC HYPERPLASIA
     Dosage: 0.5 MG AND 0.4 MG
  8. ROHYPNOL [Concomitant]
     Indication: SLEEP DISORDER
     Dosage: 1 MG, UNK
     Dates: start: 2001

REACTIONS (2)
  - Arrhythmia [Not Recovered/Not Resolved]
  - Application site erythema [Not Recovered/Not Resolved]
